FAERS Safety Report 16640550 (Version 1)
Quarter: 2019Q3

REPORT INFORMATION
  Report Type: Spontaneous
  Country: FR (occurrence: FR)
  Receive Date: 20190729
  Receipt Date: 20190729
  Transmission Date: 20191004
  Serious: Yes (Death)
  Sender: FDA-Public Use
  Company Number: FR-ACCORD-149413

PATIENT
  Age: 76 Year
  Sex: Male
  Weight: 106 kg

DRUGS (2)
  1. HEPARIN [Suspect]
     Active Substance: HEPARIN SODIUM
     Indication: VASCULAR DISORDER PROPHYLAXIS
     Route: 041
     Dates: start: 20190311, end: 20190324
  2. CLOPIDOGREL [Suspect]
     Active Substance: CLOPIDOGREL BISULFATE
     Indication: VASCULAR DISORDER PROPHYLAXIS
     Route: 048
     Dates: end: 201903

REACTIONS (2)
  - Haematuria [Fatal]
  - Gastrointestinal haemorrhage [Fatal]

NARRATIVE: CASE EVENT DATE: 20190311
